FAERS Safety Report 7926828-9 (Version None)
Quarter: 2011Q4

REPORT INFORMATION
  Report Type: 
  Country: None (occurrence: None)
  Receive Date: 20111116
  Receipt Date: 20111103
  Transmission Date: 20120403
  Serious: Yes (Other)
  Sender: FDA-Public Use
  Company Number: 11-696

PATIENT
  Age: 83 Year
  Sex: Female
  Weight: 68 kg

DRUGS (2)
  1. ALEVE [Suspect]
     Indication: PRODUCT USED FOR UNKNOWN INDICATION
     Dosage: ORAL
     Route: 048
     Dates: start: 20100801, end: 20111102
  2. BENICAR [Concomitant]

REACTIONS (3)
  - DIZZINESS [None]
  - BLOOD PRESSURE SYSTOLIC INCREASED [None]
  - BLOOD PRESSURE DIASTOLIC DECREASED [None]
